FAERS Safety Report 8282078-0 (Version None)
Quarter: 2012Q2

REPORT INFORMATION
  Report Type: 
  Country: None (occurrence: None)
  Receive Date: 20120413
  Receipt Date: 20120409
  Transmission Date: 20120825
  Serious: Yes (Other)
  Sender: FDA-Public Use
  Company Number: US-AMGEN-USASP2012001588

PATIENT
  Age: 70 Year
  Sex: Female
  Weight: 73.469 kg

DRUGS (3)
  1. PROLIA [Suspect]
     Indication: OSTEOPOROSIS
     Dosage: 60 MG, Q6MO
     Dates: start: 20110812
  2. CALCIUM WITH VITAMIN D             /00944201/ [Concomitant]
  3. CALCIUM WITH VITAMIN D             /00944201/ [Concomitant]
     Dosage: 600 MG, QD

REACTIONS (22)
  - RASH [None]
  - AFFECT LABILITY [None]
  - NASOPHARYNGITIS [None]
  - DENTAL CARE [None]
  - TOOTH LOSS [None]
  - ACTIVITIES OF DAILY LIVING IMPAIRED [None]
  - DEATH OF RELATIVE [None]
  - HAIR DISORDER [None]
  - WALKING AID USER [None]
  - FATIGUE [None]
  - MUSCULOSKELETAL PAIN [None]
  - BACK PAIN [None]
  - OROPHARYNGEAL PAIN [None]
  - DEPRESSIVE SYMPTOM [None]
  - STRESS [None]
  - BLOOD PRESSURE INCREASED [None]
  - ONYCHOCLASIS [None]
  - PAIN IN EXTREMITY [None]
  - TOOTH FRACTURE [None]
  - SURGERY [None]
  - SUICIDAL IDEATION [None]
  - MENTAL DISORDER [None]
